FAERS Safety Report 13859604 (Version 8)
Quarter: 2023Q4

REPORT INFORMATION
  Report Type: Spontaneous
  Country: US (occurrence: US)
  Receive Date: 20170811
  Receipt Date: 20231212
  Transmission Date: 20240109
  Serious: Yes (Life-Threatening)
  Sender: FDA-Public Use
  Company Number: US-PFIZER INC-2017347511

PATIENT
  Age: 68 Year
  Sex: Female
  Weight: 83.2 kg

DRUGS (7)
  1. IBRANCE [Suspect]
     Active Substance: PALBOCICLIB
     Indication: Breast cancer metastatic
     Dosage: 125 MG, UNK
  2. IBRANCE [Suspect]
     Active Substance: PALBOCICLIB
     Dosage: 125 MG, DAILY (21 DAYS)
     Route: 048
     Dates: start: 20170710, end: 20170731
  3. IBRANCE [Suspect]
     Active Substance: PALBOCICLIB
     Dosage: 100 MG, UNK
  4. IBRANCE [Suspect]
     Active Substance: PALBOCICLIB
     Dosage: 75 MG, CYCLIC (DAILY WITH FOOD FOR 21 DAYS, FOLLOWED BY 7 DAYS OFF, REPEATED EVERY 28 DAYS)
     Route: 048
     Dates: end: 20170804
  5. FULVESTRANT [Concomitant]
     Active Substance: FULVESTRANT
     Indication: Breast cancer
     Dosage: UNK
     Dates: start: 20160815
  6. XGEVA [Concomitant]
     Active Substance: DENOSUMAB
     Indication: Breast cancer
     Dosage: UNK
     Dates: start: 20160815
  7. NEXIUM I.V. [Concomitant]
     Active Substance: ESOMEPRAZOLE SODIUM
     Dosage: 40 MG EVERY MORNING BEFORE BREAKFAST
     Route: 048
     Dates: start: 20220105

REACTIONS (4)
  - Diarrhoea [Recovered/Resolved]
  - Abdominal pain [Recovering/Resolving]
  - Asthenia [Recovering/Resolving]
  - Dizziness [Recovering/Resolving]

NARRATIVE: CASE EVENT DATE: 20170731
